FAERS Safety Report 4828530-9 (Version None)
Quarter: 2005Q4

REPORT INFORMATION
  Report Type: 
  Country: None (occurrence: None)
  Receive Date: 20051110
  Receipt Date: 20051031
  Transmission Date: 20060501
  Serious: Yes (Death)
  Sender: FDA-Public Use
  Company Number: B0398905A

PATIENT
  Age: 12 Year
  Sex: Male

DRUGS (3)
  1. ALKERAN [Suspect]
     Indication: EWING'S SARCOMA
     Dosage: 160 MG/M2
  2. ETOPOSIDE [Suspect]
     Indication: EWING'S SARCOMA
     Dosage: 60 MG/KG
  3. RADIOTHERAPY (FORMULATION UNKNOWN) (RADIOTHERAPY) [Suspect]
     Indication: EWING'S SARCOMA
     Dosage: 6 GRAY / TWICE PER DAY

REACTIONS (5)
  - DRUG TOXICITY [None]
  - INFECTION [None]
  - MULTI-ORGAN FAILURE [None]
  - POST PROCEDURAL COMPLICATION [None]
  - STEM CELL TRANSPLANT [None]
